FAERS Safety Report 19318072 (Version 1)
Quarter: 2021Q2

REPORT INFORMATION
  Report Type: Spontaneous
  Country: US (occurrence: US)
  Receive Date: 20210527
  Receipt Date: 20210527
  Transmission Date: 20210717
  Serious: Yes (Hospitalization)
  Sender: FDA-Public Use
  Company Number: US-TEVA-2021-US-1915027

PATIENT
  Age: 87 Year
  Sex: Male

DRUGS (2)
  1. OXYCODONE [Suspect]
     Active Substance: OXYCODONE
     Indication: PAIN
  2. OXYCODONE [Suspect]
     Active Substance: OXYCODONE
     Indication: DEMENTIA
     Route: 065

REACTIONS (10)
  - Drug use disorder [Recovering/Resolving]
  - Delirium [Recovering/Resolving]
  - Irritability [Recovering/Resolving]
  - Drug withdrawal syndrome [Recovering/Resolving]
  - Drug dependence [Recovering/Resolving]
  - Intentional product misuse [Unknown]
  - Subdural haematoma [Unknown]
  - Agitation [Recovering/Resolving]
  - Emotional distress [Recovering/Resolving]
  - Fall [Unknown]
